FAERS Safety Report 5098114-9 (Version None)
Quarter: 2006Q3

REPORT INFORMATION
  Report Type: 
  Country: None (occurrence: None)
  Receive Date: 20060906
  Receipt Date: 20060417
  Transmission Date: 20061208
  Serious: No
  Sender: FDA-Public Use
  Company Number: US-GLAXOSMITHKLINE-A0601969A

PATIENT
  Age: 83 Year
  Sex: Female

DRUGS (9)
  1. REQUIP [Suspect]
     Indication: RESTLESS LEGS SYNDROME
     Route: 048
     Dates: start: 20060301, end: 20060301
  2. CLONAZEPAM [Concomitant]
  3. QUININE SULFATE [Concomitant]
  4. RESTORIL [Concomitant]
  5. OMEPRAZOLE [Concomitant]
  6. LISINOPRIL [Concomitant]
  7. ADVAIR DISKUS 100/50 [Concomitant]
  8. ATROVENT [Concomitant]
  9. ALBUTEROL [Concomitant]

REACTIONS (1)
  - DEPRESSION [None]
